FAERS Safety Report 6169370-0 (Version None)
Quarter: 2009Q2

REPORT INFORMATION
  Report Type: 
  Country: None (occurrence: None)
  Receive Date: 20090424
  Receipt Date: 20090323
  Transmission Date: 20091009
  Serious: No
  Sender: FDA-Public Use
  Company Number: PYLE-2009-008

PATIENT
  Age: 83 Year
  Sex: Female
  Weight: 50.8029 kg

DRUGS (8)
  1. PYLERA [Suspect]
     Indication: HELICOBACTER INFECTION
     Dosage: 3 CAPS, QID, PO
     Route: 048
     Dates: start: 20090319
  2. OMEPRAZOLE [Concomitant]
  3. DIOVAN-HCT 160/ 12.5 (VALSARTAN AND HYDROCHLOROTHIAZIDE) [Concomitant]
  4. ASPIRIN [Concomitant]
  5. MULTI-VITAMINS [Concomitant]
  6. FISH OIL [Concomitant]
  7. LIPITOR [Concomitant]
  8. AMBIEN [Concomitant]

REACTIONS (5)
  - ASTHENIA [None]
  - DECREASED APPETITE [None]
  - DIARRHOEA [None]
  - FATIGUE [None]
  - WEIGHT DECREASED [None]
